FAERS Safety Report 10650038 (Version 2)
Quarter: 2014Q4

REPORT INFORMATION
  Report Type: Spontaneous
  Country: US (occurrence: US)
  Receive Date: 20141212
  Receipt Date: 20141212
  Transmission Date: 20150529
  Serious: Yes (Other)
  Sender: FDA-Public Use
  Company Number: US-CELGENE-163-21880-14054574

PATIENT
  Sex: Female

DRUGS (2)
  1. REVLIMID [Suspect]
     Active Substance: LENALIDOMIDE
     Indication: PLASMA CELL MYELOMA
     Route: 048
     Dates: start: 201403, end: 2014
  2. REVLIMID [Suspect]
     Active Substance: LENALIDOMIDE
     Route: 048
     Dates: start: 201405

REACTIONS (6)
  - Laboratory test abnormal [Unknown]
  - Hearing impaired [Unknown]
  - Confusional state [Unknown]
  - Bone marrow failure [Unknown]
  - Chronic kidney disease [Unknown]
  - Malaise [Unknown]

NARRATIVE: CASE EVENT DATE: 2014
